FAERS Safety Report 9096329 (Version 1)
Quarter: 2013Q1

REPORT INFORMATION
  Report Type: Spontaneous
  Country: US (occurrence: US)
  Receive Date: 20130207
  Receipt Date: 20130207
  Transmission Date: 20140127
  Serious: Yes (Hospitalization, Other)
  Sender: FDA-Public Use
  Company Number: US-ABBOTT-13P-163-1043729-00

PATIENT
  Sex: Male
  Weight: 100.79 kg

DRUGS (7)
  1. HUMIRA [Suspect]
     Indication: CROHN^S DISEASE
     Dates: end: 2010
  2. HUMIRA [Suspect]
  3. HUMIRA [Suspect]
     Dates: end: 201109
  4. IMURAN [Concomitant]
     Indication: CROHN^S DISEASE
  5. VITAMIN D NOS [Concomitant]
     Indication: VITAMIN SUPPLEMENTATION
  6. MULTIVITAMIN [Concomitant]
     Indication: VITAMIN SUPPLEMENTATION
  7. LISINOPRIL [Concomitant]
     Indication: HYPERTENSION

REACTIONS (5)
  - Hereditary non-polyposis colorectal cancer syndrome [Not Recovered/Not Resolved]
  - Colon cancer stage II [Recovered/Resolved]
  - Arthralgia [Not Recovered/Not Resolved]
  - Joint range of motion decreased [Not Recovered/Not Resolved]
  - Joint lock [Not Recovered/Not Resolved]
